FAERS Safety Report 25313267 (Version 2)
Quarter: 2025Q2

REPORT INFORMATION
  Report Type: Report from Study
  Country: US (occurrence: US)
  Receive Date: 20250514
  Receipt Date: 20250623
  Transmission Date: 20250716
  Serious: Yes (Other)
  Sender: VERTEX
  Company Number: US-VERTEX PHARMACEUTICALS-2025-007501

PATIENT
  Sex: Female

DRUGS (1)
  1. ALYFTREK [Suspect]
     Active Substance: DEUTIVACAFTOR\TEZACAFTOR\VANZACAFTOR
     Indication: Cystic fibrosis
     Dosage: 10 MG VANZACAFTOR/ 50 MG TEZACAFTOR/ 125 MG DEUTIVACAFTOR; 2 TABLETS ONCE DAILY
     Route: 048
     Dates: start: 2025

REACTIONS (6)
  - Anxiety [Not Recovered/Not Resolved]
  - Communication disorder [Not Recovered/Not Resolved]
  - Amnesia [Not Recovered/Not Resolved]
  - Dysphemia [Not Recovered/Not Resolved]
  - Dysarthria [Not Recovered/Not Resolved]
  - Aphasia [Not Recovered/Not Resolved]

NARRATIVE: CASE EVENT DATE: 20250101
